FAERS Safety Report 15131573 (Version 1)
Quarter: 2018Q3

REPORT INFORMATION
  Report Type: Spontaneous
  Country: US (occurrence: US)
  Receive Date: 20180615
  Receipt Date: 20180615
  Transmission Date: 20181010
  Serious: Yes (Hospitalization)
  Sender: FDA-Public Use
  Company Number: None

PATIENT
  Sex: Female

DRUGS (17)
  1. JANUVIA [Concomitant]
     Active Substance: SITAGLIPTIN PHOSPHATE
  2. OXYCONTIN 40MG [Concomitant]
  3. ALBUTEROL 90MCG [Concomitant]
  4. OMEPRAZOLE 20MG [Concomitant]
     Active Substance: OMEPRAZOLE
  5. BONIVA 150MG [Concomitant]
  6. TRAZODONE [Concomitant]
     Active Substance: TRAZODONE HYDROCHLORIDE
  7. HUMIRA [Concomitant]
     Active Substance: ADALIMUMAB
  8. LIDODERM 5% PATCH [Concomitant]
  9. HYDROCORTISONE 5MG [Concomitant]
  10. FLUTICASONE 50MCG [Concomitant]
     Active Substance: FLUTICASONE
  11. METFORMIN 750MG ER [Concomitant]
  12. VENLAFAXINE 25MG [Concomitant]
  13. XANAX [Concomitant]
     Active Substance: ALPRAZOLAM
  14. FUROSEMIDE. [Concomitant]
     Active Substance: FUROSEMIDE
  15. SYNTHROID [Concomitant]
     Active Substance: LEVOTHYROXINE SODIUM
  16. PROLIA [Suspect]
     Active Substance: DENOSUMAB
     Indication: OSTEOPOROSIS
     Dosage: OTHER FREQUENCY:EVERY 6 MONTHS;?
     Route: 058
     Dates: start: 20171115
  17. TEMAZEPAM 15MG [Concomitant]

REACTIONS (1)
  - Blood pressure decreased [None]
